FAERS Safety Report 16034391 (Version 1)
Quarter: 2019Q1

REPORT INFORMATION
  Report Type: Report from Study
  Country: US (occurrence: US)
  Receive Date: 20190305
  Receipt Date: 20190305
  Transmission Date: 20190418
  Serious: Yes (Hospitalization)
  Sender: FDA-Public Use
  Company Number: US-TAKEDA-2018TUS006565

PATIENT
  Sex: Male
  Weight: 92.88 kg

DRUGS (1)
  1. PONATINIB [Suspect]
     Active Substance: PONATINIB
     Indication: CHRONIC MYELOID LEUKAEMIA
     Dosage: 45 MG, QD
     Route: 048
     Dates: start: 20171228

REACTIONS (4)
  - Fatigue [Unknown]
  - Multiple fractures [Unknown]
  - Insomnia [Unknown]
  - Laboratory test abnormal [Unknown]
